FAERS Safety Report 13774975 (Version 1)
Quarter: 2017Q3

REPORT INFORMATION
  Report Type: Spontaneous
  Country: US (occurrence: US)
  Receive Date: 20170720
  Receipt Date: 20170720
  Transmission Date: 20171127
  Serious: No
  Sender: FDA-Public Use
  Company Number: None

PATIENT
  Age: 44 Year
  Sex: Female

DRUGS (1)
  1. HUMIRA [Suspect]
     Active Substance: ADALIMUMAB
     Indication: PSORIASIS
     Dosage: 40MG EVERY 14 DAYS
     Route: 058
     Dates: start: 20170718

REACTIONS (5)
  - Pharyngeal oedema [None]
  - Hyperhidrosis [None]
  - Nausea [None]
  - Manufacturing product shipping issue [None]
  - Product storage error [None]

NARRATIVE: CASE EVENT DATE: 20170718
